FAERS Safety Report 5877401-8 (Version None)
Quarter: 2008Q3

REPORT INFORMATION
  Report Type: 
  Country: None (occurrence: None)
  Receive Date: 20080909
  Receipt Date: 20080828
  Transmission Date: 20090109
  Serious: Yes (Death)
  Sender: FDA-Public Use
  Company Number: 2008AL004729

PATIENT
  Age: 82 Year
  Sex: Male

DRUGS (4)
  1. DIGOXIN [Suspect]
     Dosage: PO
     Route: 048
  2. COUMADIN [Concomitant]
  3. LASIX [Concomitant]
  4. OXYGEN [Concomitant]

REACTIONS (2)
  - ARTERIOSCLEROSIS [None]
  - CHRONIC OBSTRUCTIVE PULMONARY DISEASE [None]
